FAERS Safety Report 8203222-7 (Version None)
Quarter: 2012Q1

REPORT INFORMATION
  Report Type: 
  Country: None (occurrence: None)
  Receive Date: 20120312
  Receipt Date: 20120305
  Transmission Date: 20120608
  Serious: Yes (Hospitalization)
  Sender: FDA-Public Use
  Company Number: JP-ROCHE-1033016

PATIENT
  Sex: Female
  Weight: 54 kg

DRUGS (7)
  1. AVASTIN [Suspect]
     Indication: BREAST CANCER METASTATIC
     Dosage: DOSAGE IS UNCERTAIN.
     Route: 041
     Dates: start: 20120104, end: 20120104
  2. AMARYL [Concomitant]
     Indication: DIABETES MELLITUS
     Route: 048
  3. ZOMETA [Concomitant]
     Indication: METASTASES TO BONE
     Route: 041
     Dates: start: 20101224, end: 20111129
  4. ACTOS [Concomitant]
     Indication: DIABETES MELLITUS
     Route: 048
  5. XELODA [Suspect]
     Indication: BREAST CANCER METASTATIC
     Route: 048
     Dates: start: 20101224, end: 20111129
  6. PACLITAXEL [Suspect]
     Indication: BREAST CANCER METASTATIC
     Dosage: DOSAGE IS UNCERTAIN.
     Route: 041
     Dates: start: 20120104, end: 20120111
  7. CYCLOPHOSPHAMIDE [Concomitant]
     Indication: BREAST CANCER METASTATIC
     Route: 041
     Dates: start: 20101224, end: 20111129

REACTIONS (3)
  - COUGH [None]
  - RASH [None]
  - NEUROPATHY PERIPHERAL [None]
